FAERS Safety Report 11713379 (Version 3)
Quarter: 2016Q1

REPORT INFORMATION
  Report Type: Spontaneous
  Country: US (occurrence: US)
  Receive Date: 20151109
  Receipt Date: 20160106
  Transmission Date: 20160525
  Serious: No
  Sender: FDA-Public Use
  Company Number: US-LUPIN PHARMACEUTICALS INC.-E2B_00004300

PATIENT
  Age: 85 Year
  Sex: Female
  Weight: 61.97 kg

DRUGS (4)
  1. TEVA AZITHROMYCIN [Concomitant]
     Indication: DIARRHOEA
     Dates: start: 20150928, end: 20151002
  2. TEVA AZITHROMYCIN [Concomitant]
     Indication: SALMONELLOSIS
     Dates: start: 20150917, end: 20150923
  3. SUPRAX [Suspect]
     Active Substance: CEFIXIME
     Indication: SALMONELLOSIS
     Route: 048
     Dates: start: 20150918, end: 20150928
  4. SUPRAX [Suspect]
     Active Substance: CEFIXIME
     Indication: DIARRHOEA
     Route: 048
     Dates: start: 20151001, end: 20151002

REACTIONS (5)
  - Tongue discolouration [Not Recovered/Not Resolved]
  - Drug ineffective [Unknown]
  - Tongue disorder [Not Recovered/Not Resolved]
  - Diarrhoea [Unknown]
  - Fungal infection [Recovered/Resolved]

NARRATIVE: CASE EVENT DATE: 20151003
